FAERS Safety Report 6512431-4 (Version None)
Quarter: 2009Q4

REPORT INFORMATION
  Report Type: 
  Country: None (occurrence: None)
  Receive Date: 20091222
  Receipt Date: 20090311
  Transmission Date: 20100525
  Serious: No
  Sender: FDA-Public Use
  Company Number: US-ASTRAZENECA-2009UW06358

PATIENT
  Age: 30371 Day
  Sex: Female
  Weight: 70.3 kg

DRUGS (5)
  1. CRESTOR [Suspect]
     Route: 048
     Dates: start: 20090210
  2. METOPROLOL TARTRATE [Concomitant]
     Indication: HYPERTENSION
  3. ENALAPRIL MALEATE [Concomitant]
  4. HYDRALAZINE HCL [Concomitant]
  5. LASIX [Concomitant]

REACTIONS (1)
  - MUSCLE SPASMS [None]
